FAERS Safety Report 13355277 (Version 1)
Quarter: 2017Q1

REPORT INFORMATION
  Report Type: Spontaneous
  Country: US (occurrence: US)
  Receive Date: 20170321
  Receipt Date: 20170321
  Transmission Date: 20170429
  Serious: No
  Sender: FDA-Public Use
  Company Number: US-BAYER-2017-048989

PATIENT
  Age: 38 Year
  Sex: Male

DRUGS (4)
  1. CIPROFLOXACIN. [Suspect]
     Active Substance: CIPROFLOXACIN
     Indication: PERITONITIS BACTERIAL
     Dosage: UNK UNK, OW
  2. RIFAXIMIN [Concomitant]
     Active Substance: RIFAXIMIN
     Indication: PERITONITIS BACTERIAL
     Dosage: UNK UNK, QD
  3. CIPROFLOXACIN. [Suspect]
     Active Substance: CIPROFLOXACIN
     Indication: PROPHYLAXIS
  4. RIFAXIMIN [Concomitant]
     Active Substance: RIFAXIMIN
     Indication: PROPHYLAXIS

REACTIONS (1)
  - Off label use [None]
